FAERS Safety Report 8211217-2 (Version None)
Quarter: 2012Q1

REPORT INFORMATION
  Report Type: 
  Country: None (occurrence: None)
  Receive Date: 20120315
  Receipt Date: 20120308
  Transmission Date: 20120608
  Serious: Yes (Hospitalization, Other)
  Sender: FDA-Public Use
  Company Number: US-PURDUE-USA-2012-0083522

PATIENT
  Sex: Female

DRUGS (4)
  1. ATIVAN [Suspect]
     Indication: PRODUCT USED FOR UNKNOWN INDICATION
  2. OXYCONTIN [Suspect]
     Indication: PRODUCT USED FOR UNKNOWN INDICATION
     Dosage: 20 MG, TID
  3. LORTAB [Suspect]
     Indication: PRODUCT USED FOR UNKNOWN INDICATION
  4. SOMA [Suspect]
     Indication: PRODUCT USED FOR UNKNOWN INDICATION

REACTIONS (7)
  - INSOMNIA [None]
  - INCOHERENT [None]
  - UNEVALUABLE EVENT [None]
  - MULTIPLE DRUG OVERDOSE [None]
  - CIRCULATORY COLLAPSE [None]
  - RESTLESSNESS [None]
  - TREMOR [None]
